FAERS Safety Report 7485931-0 (Version None)
Quarter: 2011Q2

REPORT INFORMATION
  Report Type: 
  Country: None (occurrence: None)
  Receive Date: 20110517
  Receipt Date: 20110405
  Transmission Date: 20111010
  Serious: Yes (Other)
  Sender: FDA-Public Use
  Company Number: US-BAYER-2011-015464

PATIENT
  Age: 56 Year
  Sex: Male
  Weight: 98.866 kg

DRUGS (1)
  1. MAGNEVIST [Suspect]
     Indication: NUCLEAR MAGNETIC RESONANCE IMAGING BRAIN
     Dosage: DAILY DOSE 20 ML
     Route: 042
     Dates: start: 20110215, end: 20110215

REACTIONS (7)
  - VOMITING [None]
  - DYSPNOEA [None]
  - GENERALISED ERYTHEMA [None]
  - URTICARIA [None]
  - CHEST PAIN [None]
  - PARAESTHESIA [None]
  - NAUSEA [None]
